FAERS Safety Report 15676455 (Version 1)
Quarter: 2018Q4

REPORT INFORMATION
  Report Type: Report from Study
  Country: None (occurrence: RO)
  Receive Date: 20181130
  Receipt Date: 20181130
  Transmission Date: 20190205
  Serious: Yes (Hospitalization)
  Sender: FDA-Public Use
  Company Number: RO-ABBVIE-18S-135-2569782-00

PATIENT
  Age: 44 Year
  Sex: Female

DRUGS (1)
  1. DUODOPA [Suspect]
     Active Substance: CARBIDOPA\LEVODOPA
     Indication: PARKINSON^S DISEASE
     Dosage: DM=8.00 DC=1.80 ED=1.00 NRED=2; DMN=0.00 DCN=0.20 EDN=0.20 NREDN=0
     Route: 050
     Dates: start: 20150211

REACTIONS (3)
  - Stoma site irritation [Unknown]
  - Medical device pain [Unknown]
  - Stoma site hypergranulation [Recovering/Resolving]

NARRATIVE: CASE EVENT DATE: 20181123
